FAERS Safety Report 6179288-5 (Version None)
Quarter: 2009Q2

REPORT INFORMATION
  Report Type: 
  Country: None (occurrence: None)
  Receive Date: 20090430
  Receipt Date: 20090422
  Transmission Date: 20091009
  Serious: Yes (Hospitalization)
  Sender: FDA-Public Use
  Company Number: CLOF-1000520

PATIENT
  Age: 46 Year
  Sex: Female
  Weight: 70.5 kg

DRUGS (2)
  1. CLOLAR [Suspect]
     Indication: STEM CELL TRANSPLANT
     Dosage: 54 MG, QDX5, INTRAVENOUS
     Route: 042
     Dates: start: 20090414, end: 20090418
  2. CAMPATH [Suspect]
     Indication: STEM CELL TRANSPLANT
     Dosage: 20 MG, ONCE, INTRAVENOUS
     Route: 042
     Dates: start: 20090414, end: 20090414

REACTIONS (1)
  - CONVULSION [None]
